FAERS Safety Report 21625023 (Version 1)
Quarter: 2022Q4

REPORT INFORMATION
  Report Type: Spontaneous
  Country: GB (occurrence: GB)
  Receive Date: 20221122
  Receipt Date: 20221122
  Transmission Date: 20230113
  Serious: Yes (Hospitalization)
  Sender: FDA-Public Use
  Company Number: None

PATIENT
  Age: 52 Year
  Sex: Female

DRUGS (3)
  1. ATORVASTATIN [Suspect]
     Active Substance: ATORVASTATIN
     Dosage: 40 MG ONCE A DAY (NIGHT) ORAL
     Route: 048
     Dates: start: 20221114, end: 20221114
  2. LACTULOSE [Concomitant]
     Active Substance: LACTULOSE
     Dosage: 10 ML TWICE A DAY ORAL
     Route: 048
     Dates: start: 20221114
  3. OXYGEN [Concomitant]
     Active Substance: OXYGEN
     Dosage: SEE ASSESSMENTS VIEW OR POWERFORM FOR PRESCRIPTION AND MONITORING DETAILS
     Dates: start: 20221114, end: 20221114

REACTIONS (1)
  - Haematemesis [Recovering/Resolving]
